FAERS Safety Report 12578937 (Version 2)
Quarter: 2016Q3

REPORT INFORMATION
  Report Type: Spontaneous
  Country: AU (occurrence: AU)
  Receive Date: 20160721
  Receipt Date: 20160721
  Transmission Date: 20161109
  Serious: Yes (Other)
  Sender: FDA-Public Use
  Company Number: PHHY2016AU093602

PATIENT
  Sex: Male

DRUGS (15)
  1. MYCOPHENOLATE [Suspect]
     Active Substance: MYCOPHENOLIC ACID
     Indication: NEUTROPHILIC DERMATOSIS
     Route: 065
  2. WARFARIN [Concomitant]
     Active Substance: WARFARIN
     Indication: DEEP VEIN THROMBOSIS
     Route: 065
  3. DAPSONE. [Suspect]
     Active Substance: DAPSONE
     Indication: NEUTROPHILIC DERMATOSIS
     Route: 065
  4. AZATHIOPRINE. [Suspect]
     Active Substance: AZATHIOPRINE
     Indication: NEUTROPHILIC DERMATOSIS
     Route: 065
  5. PREDNISOLONE. [Suspect]
     Active Substance: PREDNISOLONE
     Indication: NEUTROPHILIC DERMATOSIS
     Dosage: 30 TO 50 MG DAILY
     Route: 065
  6. TOCILIZUMAB [Concomitant]
     Active Substance: TOCILIZUMAB
     Indication: NEUTROPHILIC DERMATOSIS
     Route: 065
  7. CICLOSPORIN [Suspect]
     Active Substance: CYCLOSPORINE
     Indication: NEUTROPHILIC DERMATOSIS
     Route: 065
  8. SECUKINUMAB [Suspect]
     Active Substance: SECUKINUMAB
     Indication: NEUTROPHILIC DERMATOSIS
     Dosage: 300 MG, UNK
     Route: 065
  9. ANAKINRA [Suspect]
     Active Substance: ANAKINRA
     Indication: NEUTROPHILIC DERMATOSIS
     Route: 065
  10. POTASSIUM IODIDE. [Suspect]
     Active Substance: POTASSIUM IODIDE
     Indication: NEUTROPHILIC DERMATOSIS
     Route: 065
  11. COLCHICINE. [Suspect]
     Active Substance: COLCHICINE
     Indication: NEUTROPHILIC DERMATOSIS
     Route: 065
  12. INFLIXIMAB [Concomitant]
     Active Substance: INFLIXIMAB
     Indication: NEUTROPHILIC DERMATOSIS
     Route: 065
  13. METHOTREXATE. [Suspect]
     Active Substance: METHOTREXATE
     Indication: NEUTROPHILIC DERMATOSIS
     Route: 065
  14. CYCLOPHOSPHAMIDE. [Suspect]
     Active Substance: CYCLOPHOSPHAMIDE
     Indication: NEUTROPHILIC DERMATOSIS
     Route: 042
  15. RITUXIMAB [Suspect]
     Active Substance: RITUXIMAB
     Indication: NEUTROPHILIC DERMATOSIS
     Dosage: 1 G, (2 DOSES)
     Route: 065
     Dates: end: 2015

REACTIONS (7)
  - Cataract [Unknown]
  - Glucose tolerance impaired [Unknown]
  - Injection site reaction [Unknown]
  - Bone marrow failure [Unknown]
  - Drug ineffective [Unknown]
  - Ulcer [Unknown]
  - Weight increased [Unknown]
